FAERS Safety Report 7973263-3 (Version None)
Quarter: 2011Q4

REPORT INFORMATION
  Report Type: 
  Country: None (occurrence: None)
  Receive Date: 20111209
  Receipt Date: 20111123
  Transmission Date: 20120403
  Serious: Yes (Other)
  Sender: FDA-Public Use
  Company Number: 1000025904

PATIENT
  Sex: Female

DRUGS (1)
  1. ROFLUMILAST (ROFLUMILAST) TABLETS [Suspect]
     Dosage: 1500 MCG (500 MCG, 1 IN 8 HR), ORAL
     Route: 048
     Dates: start: 20111101, end: 20111101

REACTIONS (5)
  - OVERDOSE [None]
  - MALAISE [None]
  - NERVOUSNESS [None]
  - HEADACHE [None]
  - ACCIDENTAL OVERDOSE [None]
